FAERS Safety Report 11302623 (Version 4)
Quarter: 2015Q4

REPORT INFORMATION
  Report Type: Spontaneous
  Country: US (occurrence: US)
  Receive Date: 20150723
  Receipt Date: 20151109
  Transmission Date: 20160304
  Serious: Yes (Hospitalization, Other)
  Sender: FDA-Public Use
  Company Number: US-BIOGENIDEC-2015BI101862

PATIENT
  Age: 65 Year
  Sex: Female
  Weight: 41 kg

DRUGS (17)
  1. KLONOPIN [Concomitant]
     Active Substance: CLONAZEPAM
  2. NITROFURANTOIN. [Concomitant]
     Active Substance: NITROFURANTOIN
  3. OXYBUTYNIN [Concomitant]
     Active Substance: OXYBUTYNIN
  4. COPAXONE [Concomitant]
     Active Substance: GLATIRAMER ACETATE
  5. PANTOPRAZOLE [Concomitant]
     Active Substance: PANTOPRAZOLE SODIUM
  6. GLUCOSAMINE + CHONDROITIN [Concomitant]
  7. BACLOFEN. [Concomitant]
     Active Substance: BACLOFEN
  8. SENOKOT [Concomitant]
     Active Substance: SENNOSIDES
  9. MYRBETRIQ [Concomitant]
     Active Substance: MIRABEGRON
  10. TRAMADOL. [Concomitant]
     Active Substance: TRAMADOL
  11. FORADIL [Concomitant]
     Active Substance: FORMOTEROL FUMARATE
     Indication: LUNG DISORDER
  12. COLACE [Concomitant]
     Active Substance: DOCUSATE SODIUM
  13. TECFIDERA [Suspect]
     Active Substance: DIMETHYL FUMARATE
     Indication: MULTIPLE SCLEROSIS
     Route: 048
     Dates: start: 201307, end: 201502
  14. AMPYRA [Concomitant]
     Active Substance: DALFAMPRIDINE
     Indication: GAIT DISTURBANCE
     Route: 048
     Dates: start: 2011
  15. ABILIFY [Concomitant]
     Active Substance: ARIPIPRAZOLE
  16. NIFEDIPINE ER [Concomitant]
     Active Substance: NIFEDIPINE
  17. LYRICA [Concomitant]
     Active Substance: PREGABALIN

REACTIONS (5)
  - Insomnia [Unknown]
  - Lymphocyte count decreased [Not Recovered/Not Resolved]
  - Pneumonia [Recovered/Resolved]
  - Bronchiectasis [Not Recovered/Not Resolved]
  - Asthenia [Unknown]

NARRATIVE: CASE EVENT DATE: 201405
